FAERS Safety Report 5645132-5 (Version None)
Quarter: 2008Q1

REPORT INFORMATION
  Report Type: 
  Country: None (occurrence: None)
  Receive Date: 20080229
  Receipt Date: 20080218
  Transmission Date: 20080703
  Serious: Yes (Other)
  Sender: FDA-Public Use
  Company Number: MX-ROCHE-546106

PATIENT
  Age: 65 Year
  Sex: Female
  Weight: 76 kg

DRUGS (5)
  1. XENICAL [Suspect]
     Indication: OVERWEIGHT
     Route: 048
     Dates: start: 20040101, end: 20080101
  2. LEVOTHYROX [Concomitant]
     Indication: HYPOTHYROIDISM
     Dosage: DRUG: LEVOTIROXIA DOSAGE: DAILY
     Route: 048
     Dates: start: 20071201
  3. DILACORON [Concomitant]
     Indication: HYPERTENSION
     Dosage: DRUG REPORTED: VARAPAMILO/DILACORAN
     Route: 048
     Dates: start: 20020101
  4. 1 CONCOMITANT DRUG [Concomitant]
     Dosage: DRUG: TROVASTATINA DOSAGE: DAILY
     Route: 048
     Dates: start: 20070901
  5. ALTRULINE [Concomitant]
     Indication: DEPRESSION
     Dosage: DRUG: ARTRULINE DOSAGE: DAILY
     Route: 048
     Dates: start: 20050101

REACTIONS (1)
  - ILEITIS [None]
